FAERS Safety Report 15101221 (Version 1)
Quarter: 2018Q3

REPORT INFORMATION
  Report Type: Spontaneous
  Country: DE (occurrence: DE)
  Receive Date: 20180703
  Receipt Date: 20180703
  Transmission Date: 20181010
  Serious: Yes (Other)
  Sender: FDA-Public Use
  Company Number: PHHY2016DE005851

PATIENT
  Sex: Female

DRUGS (2)
  1. GLIVEC [Suspect]
     Active Substance: IMATINIB MESYLATE
     Indication: GASTROINTESTINAL STROMAL TUMOUR
     Dosage: 1 DF, QD
     Route: 065
     Dates: start: 201209
  2. ASPIRIN. [Concomitant]
     Active Substance: ASPIRIN
     Indication: CARDIAC DISORDER
     Route: 065

REACTIONS (19)
  - Palmar-plantar erythrodysaesthesia syndrome [Unknown]
  - Dizziness [Unknown]
  - Myocardial infarction [Unknown]
  - Cataract [Unknown]
  - Headache [Unknown]
  - Hyperhidrosis [Unknown]
  - Sensory loss [Unknown]
  - Eye haemorrhage [Unknown]
  - Neuropathy peripheral [Unknown]
  - Palpitations [Recovered/Resolved]
  - Skin fissures [Unknown]
  - Stenosis [Unknown]
  - Thyroid mass [Unknown]
  - Chest pain [Unknown]
  - Mitral valve disease [Unknown]
  - Raynaud^s phenomenon [Unknown]
  - Nausea [Unknown]
  - Blood blister [Unknown]
  - Hypotension [Unknown]

NARRATIVE: CASE EVENT DATE: 2014
